FAERS Safety Report 8520481-1 (Version None)
Quarter: 2012Q3

REPORT INFORMATION
  Report Type: 
  Country: None (occurrence: None)
  Receive Date: 20120719
  Receipt Date: 20120716
  Transmission Date: 20120928
  Serious: Yes (Hospitalization)
  Sender: FDA-Public Use
  Company Number: DE-SANOFI-AVENTIS-2012SA050463

PATIENT
  Age: 63 Year
  Sex: Female

DRUGS (1)
  1. ENOXAPARIN SODIUM [Suspect]
     Dosage: OVERALL 36 X 60  MG
     Route: 065
     Dates: start: 20120101, end: 20120701

REACTIONS (3)
  - ASCITES [None]
  - MICTURITION DISORDER [None]
  - OEDEMA PERIPHERAL [None]
